FAERS Safety Report 20608911 (Version 1)
Quarter: 2022Q1

REPORT INFORMATION
  Report Type: Spontaneous
  Country: JP (occurrence: JP)
  Receive Date: 20220317
  Receipt Date: 20220317
  Transmission Date: 20220423
  Serious: Yes (Other)
  Sender: FDA-Public Use
  Company Number: JP-DSJP-DSJ-2022-108529

PATIENT
  Age: 67 Year
  Sex: Female

DRUGS (4)
  1. EDOXABAN TOSYLATE [Suspect]
     Active Substance: EDOXABAN TOSYLATE
     Indication: Deep vein thrombosis
     Dosage: 30MG/DAY
     Route: 065
  2. ASPIRIN [Suspect]
     Active Substance: ASPIRIN
     Dosage: 200MG/DAY
     Route: 065
  3. CLOPIDOGREL [Suspect]
     Active Substance: CLOPIDOGREL BISULFATE
     Dosage: 300MG/DAY
  4. OZAGREL [Suspect]
     Active Substance: OZAGREL
     Dosage: UNK
     Route: 065

REACTIONS (3)
  - Cerebral artery occlusion [Recovered/Resolved]
  - Myocardial infarction [Unknown]
  - Haematochezia [Unknown]
